FAERS Safety Report 7135805-X (Version None)
Quarter: 2010Q4

REPORT INFORMATION
  Report Type: 
  Country: None (occurrence: None)
  Receive Date: 20101203
  Receipt Date: 20101124
  Transmission Date: 20110411
  Serious: Yes (Hospitalization, Other)
  Sender: FDA-Public Use
  Company Number: US-MERCK-0805USA05502

PATIENT
  Age: 80 Year
  Sex: Female
  Weight: 52 kg

DRUGS (3)
  1. FOSAMAX [Suspect]
     Indication: OSTEOPOROSIS
     Route: 048
     Dates: start: 19970603, end: 20030101
  2. FOSAMAX [Suspect]
     Route: 048
     Dates: start: 20030101, end: 20030101
  3. [THERAPY UNSPECIFIED] [Concomitant]
     Route: 065

REACTIONS (61)
  - ABSCESS [None]
  - ADVERSE DRUG REACTION [None]
  - ADVERSE EVENT [None]
  - ANAEMIA MACROCYTIC [None]
  - ANXIETY [None]
  - ARTERIOSCLEROSIS CORONARY ARTERY [None]
  - ASTHENIA [None]
  - ATRIAL FIBRILLATION [None]
  - BONE DENSITY DECREASED [None]
  - CARDIAC VALVE DISEASE [None]
  - CONSTIPATION [None]
  - DECREASED APPETITE [None]
  - DECUBITUS ULCER [None]
  - DEHYDRATION [None]
  - DENTAL CARIES [None]
  - DEPRESSION [None]
  - DEVICE FAILURE [None]
  - DEVICE RELATED INFECTION [None]
  - DISCOMFORT [None]
  - DRUG HYPERSENSITIVITY [None]
  - DYSARTHRIA [None]
  - DYSPNOEA [None]
  - FALL [None]
  - FATIGUE [None]
  - FUNGAL SKIN INFECTION [None]
  - GAIT DISTURBANCE [None]
  - GASTROOESOPHAGEAL REFLUX DISEASE [None]
  - GINGIVITIS [None]
  - HEPATIC ENZYME INCREASED [None]
  - HIP FRACTURE [None]
  - HUMERUS FRACTURE [None]
  - HYPERTENSION [None]
  - HYPERTONIC BLADDER [None]
  - HYPOTHYROIDISM [None]
  - HYPOXIA [None]
  - IMPLANT SITE ABSCESS [None]
  - INSOMNIA [None]
  - LEFT VENTRICULAR HYPERTROPHY [None]
  - LEUKOCYTOSIS [None]
  - MUCOCUTANEOUS CANDIDIASIS [None]
  - NAUSEA [None]
  - NEURALGIA [None]
  - OEDEMA PERIPHERAL [None]
  - ORAL CAVITY FISTULA [None]
  - ORAL DISORDER [None]
  - OSTEOARTHRITIS [None]
  - OSTEOMYELITIS [None]
  - OSTEOMYELITIS CHRONIC [None]
  - OSTEONECROSIS [None]
  - OSTEONECROSIS OF JAW [None]
  - PNEUMONIA [None]
  - POLYURIA [None]
  - REGURGITATION [None]
  - SEBORRHOEIC DERMATITIS [None]
  - STRESS [None]
  - SYSTEMIC CANDIDA [None]
  - THROMBOSIS [None]
  - UTERINE DISORDER [None]
  - VOMITING [None]
  - WEIGHT DECREASED [None]
  - WHITE BLOOD CELL COUNT INCREASED [None]
